FAERS Safety Report 7065714-6 (Version None)
Quarter: 2010Q4

REPORT INFORMATION
  Report Type: 
  Country: None (occurrence: None)
  Receive Date: 20101027
  Receipt Date: 20101013
  Transmission Date: 20110411
  Serious: Yes (Other)
  Sender: FDA-Public Use
  Company Number: PHHY2010ZA68489

PATIENT
  Age: 17 Year

DRUGS (1)
  1. GLEEVEC [Suspect]
     Dosage: 400 MG
     Route: 048
     Dates: start: 20090501

REACTIONS (3)
  - DRUG INEFFECTIVE [None]
  - GENE MUTATION IDENTIFICATION TEST POSITIVE [None]
  - TREATMENT NONCOMPLIANCE [None]
